FAERS Safety Report 7972780-X (Version None)
Quarter: 2011Q4

REPORT INFORMATION
  Report Type: 
  Country: None (occurrence: None)
  Receive Date: 20111213
  Receipt Date: 20111209
  Transmission Date: 20120403
  Serious: No
  Sender: FDA-Public Use
  Company Number: US-PFIZER INC-2011301217

PATIENT
  Sex: Female

DRUGS (3)
  1. NIFEDIPINE [Suspect]
     Dosage: 30 MG IN THE MORNING
  2. PROCARDIA XL [Suspect]
     Dosage: 30 MG, ONE TABLET IN MORNING AND TWO TABLETS IN EVENING
     Route: 048
  3. PROCARDIA XL [Suspect]
     Dosage: 60 MG IN EVENING
     Route: 048

REACTIONS (4)
  - VERTIGO [None]
  - DIZZINESS [None]
  - MOOD SWINGS [None]
  - HYPOTENSION [None]
